FAERS Safety Report 14678648 (Version 4)
Quarter: 2018Q2

REPORT INFORMATION
  Report Type: Spontaneous
  Country: FR (occurrence: FR)
  Receive Date: 20180326
  Receipt Date: 20180504
  Transmission Date: 20180711
  Serious: Yes (Hospitalization)
  Sender: FDA-Public Use
  Company Number: FR-AMGEN-FRASP2018040324

PATIENT
  Age: 77 Year
  Sex: Female
  Weight: 66 kg

DRUGS (12)
  1. NEULASTA [Suspect]
     Active Substance: PEGFILGRASTIM
     Indication: TUMOUR LYSIS SYNDROME
     Dosage: UNK
     Route: 058
     Dates: start: 20180209
  2. MABTHERA [Suspect]
     Active Substance: RITUXIMAB
     Indication: LYMPHOMA
     Dosage: 623 MG, ONE TIME DOSE (1 IN 1 TOTAL)
     Route: 042
     Dates: start: 20180206, end: 20180206
  3. PRIMPERAN [Concomitant]
     Active Substance: METOCLOPRAMIDE HYDROCHLORIDE
     Dosage: UNK
  4. NEORECORMON [Concomitant]
     Active Substance: ERYTHROPOIETIN
     Dosage: UNK
  5. ALLOPURINOL. [Suspect]
     Active Substance: ALLOPURINOL
     Indication: TUMOUR LYSIS SYNDROME
     Dosage: 200 MG, 1 IN 1 D
     Route: 048
     Dates: start: 20180206, end: 20180209
  6. ZELITREX [Suspect]
     Active Substance: VALACYCLOVIR HYDROCHLORIDE
     Indication: PROPHYLAXIS
     Dosage: 1000 MG, QD (1 IN 1 D)
     Route: 048
     Dates: start: 20180209, end: 20180219
  7. GRANOCYTE [Concomitant]
     Active Substance: LENOGRASTIM
     Dosage: UNK
  8. BENDAMUSTINE [Suspect]
     Active Substance: BENDAMUSTINE
     Indication: LYMPHOMA
     Dosage: 149 MG, ONE TIME DOSE (1 IN 1 TOTAL)
     Route: 042
     Dates: start: 20180206, end: 20180206
  9. NEULASTA [Suspect]
     Active Substance: PEGFILGRASTIM
     Indication: NEUTROPENIA
     Dosage: UNK
     Route: 058
  10. ECONAZOLE [Concomitant]
     Active Substance: ECONAZOLE
     Dosage: UNK
  11. BACTRIM [Suspect]
     Active Substance: SULFAMETHOXAZOLE\TRIMETHOPRIM
     Indication: PROPHYLAXIS
     Dosage: UNK (MONDAY WEDNESDAY FRIDAY)
     Route: 048
     Dates: start: 20180209, end: 20180219
  12. ROCEPHINE [Suspect]
     Active Substance: CEFTRIAXONE SODIUM
     Indication: NEUTROPENIA
     Dosage: 2 MG, 1 IN 1 D
     Route: 042
     Dates: start: 20180209, end: 20180209

REACTIONS (4)
  - Pyrexia [Recovered/Resolved]
  - Hypersensitivity [Recovering/Resolving]
  - Hypotension [Recovered/Resolved]
  - Rash maculo-papular [Recovering/Resolving]

NARRATIVE: CASE EVENT DATE: 20180219
